FAERS Safety Report 5232607-6 (Version None)
Quarter: 2007Q1

REPORT INFORMATION
  Report Type: 
  Country: None (occurrence: None)
  Receive Date: 20070207
  Receipt Date: 20070126
  Transmission Date: 20070707
  Serious: Yes (Other)
  Sender: FDA-Public Use
  Company Number: 2007UW01642

PATIENT
  Age: 67 Year
  Sex: Female

DRUGS (9)
  1. LOSEC [Suspect]
     Indication: GASTROINTESTINAL DISORDER
     Route: 048
     Dates: start: 20000101, end: 20060101
  2. AMLODIPINE [Concomitant]
     Indication: HYPERTENSION
     Route: 048
  3. HYDROCHLOROTHIAZIDE [Concomitant]
     Indication: HYPERTENSION
     Route: 048
  4. EZETIMIBE [Concomitant]
     Indication: BLOOD CHOLESTEROL INCREASED
     Route: 048
  5. SUCRALFATE [Concomitant]
     Indication: ABDOMINAL DISTENSION
     Route: 048
  6. SUCRALFATE [Concomitant]
     Indication: FLATULENCE
     Route: 048
  7. ATORVASTATIN CALCIUM [Concomitant]
  8. ATENOLOL [Concomitant]
  9. RAMIPRIL [Concomitant]

REACTIONS (3)
  - ABDOMINAL DISTENSION [None]
  - GASTROINTESTINAL PAIN [None]
  - POLYP [None]
